FAERS Safety Report 4530600-X (Version None)
Quarter: 2004Q4

REPORT INFORMATION
  Report Type: 
  Country: None (occurrence: None)
  Receive Date: 20041216
  Receipt Date: 20041203
  Transmission Date: 20050328
  Serious: Yes (Life-Threatening, Other)
  Sender: FDA-Public Use
  Company Number: 2004072527

PATIENT
  Age: 60 Year
  Sex: Male

DRUGS (1)
  1. SULPERAZON (CEFOPERAZONE, SULBACTAM) [Suspect]
     Indication: ILL-DEFINED DISORDER
     Dosage: 2 GRAM (2 IN 1 D), INTRAVENOUS
     Route: 042
     Dates: start: 20040830, end: 20040918

REACTIONS (6)
  - ANAPHYLACTIC SHOCK [None]
  - BLOOD PRESSURE DECREASED [None]
  - CHOLANGITIS [None]
  - DYSPNOEA [None]
  - NAUSEA [None]
  - PYREXIA [None]
